FAERS Safety Report 6959201-0 (Version None)
Quarter: 2010Q3

REPORT INFORMATION
  Report Type: 
  Country: None (occurrence: None)
  Receive Date: 20100831
  Receipt Date: 20100818
  Transmission Date: 20110219
  Serious: Yes (Hospitalization)
  Sender: FDA-Public Use
  Company Number: US-ELI_LILLY_AND_COMPANY-US201008006649

PATIENT
  Sex: Female

DRUGS (4)
  1. FORTEO [Suspect]
     Indication: OSTEOPOROSIS
     Dosage: 20 UG, DAILY (1/D)
  2. CORTICOSTEROIDS [Concomitant]
     Dosage: UNK, DAILY (1/D)
  3. ANTIHYPERTENSIVES [Concomitant]
  4. OXYGEN [Concomitant]

REACTIONS (4)
  - BRONCHITIS [None]
  - COLLAPSE OF LUNG [None]
  - DYSPNOEA [None]
  - INFLUENZA [None]
